FAERS Safety Report 24453165 (Version 2)
Quarter: 2024Q4

REPORT INFORMATION
  Report Type: Report from Study
  Country: US (occurrence: US)
  Receive Date: 20241017
  Receipt Date: 20241018
  Transmission Date: 20250115
  Serious: No
  Sender: ROCHE
  Company Number: US-ROCHE-3148631

PATIENT
  Age: 76 Year
  Sex: Female
  Weight: 95.0 kg

DRUGS (24)
  1. RITUXAN [Suspect]
     Active Substance: RITUXIMAB
     Indication: Microscopic polyangiitis
     Dosage: DAY 1 AND DAY 14 Q6 MONTH, 2 INFUSIONS 2 WEEKS APART, THEN Q6 MONTHS, RECEIVED THE MOST RECENT DOSE
     Route: 041
     Dates: start: 20220421
  2. ASPIRIN [Concomitant]
     Active Substance: ASPIRIN
     Route: 048
  3. BACLOFEN [Concomitant]
     Active Substance: BACLOFEN
     Dosage: FREQUENCY TEXT:PRN
     Route: 048
  4. CLOTRIMAZOLE [Concomitant]
     Active Substance: CLOTRIMAZOLE
  5. COENZYME Q10 [Concomitant]
     Active Substance: DIETARY SUPPLEMENT\UBIDECARENONE
     Route: 048
  6. EPIPEN [Concomitant]
     Active Substance: EPINEPHRINE
     Dosage: FREQUENCY TEXT:PRN
  7. FOLIC ACID [Concomitant]
     Active Substance: FOLIC ACID
     Route: 048
  8. GABAPENTIN [Concomitant]
     Active Substance: GABAPENTIN
     Route: 048
  9. LEVOTHYROXINE [Concomitant]
     Active Substance: LEVOTHYROXINE
     Route: 048
  10. LOSARTAN [Concomitant]
     Active Substance: LOSARTAN
     Route: 048
  11. MAGNESIUM [Concomitant]
     Active Substance: MAGNESIUM
     Dosage: UP TO 1000 MG
  12. MAGNESIUM OXIDE [Concomitant]
     Active Substance: MAGNESIUM OXIDE
     Route: 048
  13. MIRALAX [Concomitant]
     Active Substance: POLYETHYLENE GLYCOL 3350
     Route: 048
  14. OMEPRAZOLE [Concomitant]
     Active Substance: OMEPRAZOLE
     Dosage: DELAYED RELEASE CAPSULE
     Route: 048
  15. ORAZINC [ZINC SULFATE] [Concomitant]
     Route: 048
  16. PEPCID [Concomitant]
     Active Substance: FAMOTIDINE
     Route: 048
  17. PREDNISONE [Concomitant]
     Active Substance: PREDNISONE
  18. PREDNISONE [Concomitant]
     Active Substance: PREDNISONE
     Route: 048
  19. PROLIA [Concomitant]
     Active Substance: DENOSUMAB
     Dosage: 60 MG/ML
     Route: 058
  20. SPIRONOLACTONE [Concomitant]
     Active Substance: SPIRONOLACTONE
     Route: 048
  21. SUCRALFATE [Concomitant]
     Active Substance: SUCRALFATE
     Dosage: 1 G/10ML
  22. TYLENOL [Concomitant]
     Active Substance: ACETAMINOPHEN
  23. VALACYCLOVIR [Concomitant]
     Active Substance: VALACYCLOVIR HYDROCHLORIDE
     Route: 048
  24. VITAMIN D3 [Concomitant]
     Active Substance: CHOLECALCIFEROL
     Route: 048

REACTIONS (2)
  - Off label use [Unknown]
  - No adverse event [Unknown]
